FAERS Safety Report 7457950-1 (Version None)
Quarter: 2011Q2

REPORT INFORMATION
  Report Type: 
  Country: None (occurrence: None)
  Receive Date: 20110504
  Receipt Date: 20110419
  Transmission Date: 20111010
  Serious: Yes (Other)
  Sender: FDA-Public Use
  Company Number: DE-GENENTECH-310356

PATIENT
  Sex: Male

DRUGS (4)
  1. ANTIHYPERTENSIVES [Concomitant]
     Indication: PRODUCT USED FOR UNKNOWN INDICATION
  2. LUCENTIS [Suspect]
     Dosage: UNK
     Route: 031
     Dates: start: 20101026
  3. ANTICOAGULANTS [Concomitant]
     Indication: PRODUCT USED FOR UNKNOWN INDICATION
  4. LUCENTIS [Suspect]
     Indication: AGE-RELATED MACULAR DEGENERATION
     Dosage: 0.5 MG, UNKNOWN
     Route: 031
     Dates: start: 20100921

REACTIONS (1)
  - TRANSIENT ISCHAEMIC ATTACK [None]
